FAERS Safety Report 24444204 (Version 1)
Quarter: 2024Q4

REPORT INFORMATION
  Report Type: Report from Study
  Country: IT (occurrence: IT)
  Receive Date: 20241016
  Receipt Date: 20241016
  Transmission Date: 20250114
  Serious: Yes (Death, Life-Threatening, Other)
  Sender: ROCHE
  Company Number: IT-ROCHE-10000104523

PATIENT

DRUGS (2)
  1. RITUXIMAB [Suspect]
     Active Substance: RITUXIMAB
     Indication: Systemic scleroderma
     Route: 065
  2. MYCOPHENOLATE MOFETIL [Suspect]
     Active Substance: MYCOPHENOLATE MOFETIL
     Indication: Systemic scleroderma
     Route: 065

REACTIONS (19)
  - Death [Fatal]
  - Gastrointestinal disorder [Unknown]
  - Cytopenia [Unknown]
  - Transaminases increased [Unknown]
  - Pancreatic enzymes increased [Unknown]
  - Haematological malignancy [Unknown]
  - Lung neoplasm malignant [Unknown]
  - Breast cancer [Unknown]
  - Skin cancer [Unknown]
  - Ovarian cancer [Unknown]
  - Pancreatic carcinoma [Unknown]
  - Malignant melanoma [Unknown]
  - Thyroid cancer [Unknown]
  - COVID-19 [Unknown]
  - Viral infection [Unknown]
  - Fungal infection [Unknown]
  - Bacterial infection [Unknown]
  - Varicella zoster virus infection [Unknown]
  - Respiratory tract infection [Unknown]
